FAERS Safety Report 4279083-8 (Version None)
Quarter: 2004Q1

REPORT INFORMATION
  Report Type: 
  Country: None (occurrence: None)
  Receive Date: 20040126
  Receipt Date: 20031118
  Transmission Date: 20041129
  Serious: No
  Sender: FDA-Public Use
  Company Number: WAES 0311USA02214

PATIENT

DRUGS (1)
  1. MAXALT [Suspect]

REACTIONS (1)
  - NO ADVERSE EFFECT [None]
